FAERS Safety Report 19358306 (Version 1)
Quarter: 2021Q2

REPORT INFORMATION
  Report Type: Spontaneous
  Country: JP (occurrence: JP)
  Receive Date: 20210601
  Receipt Date: 20210601
  Transmission Date: 20210717
  Serious: Yes (Death)
  Sender: FDA-Public Use
  Company Number: JP-IPSEN BIOPHARMACEUTICALS, INC.-2021-13375

PATIENT
  Age: 75 Year
  Sex: Female

DRUGS (3)
  1. ONIVYDE [Suspect]
     Active Substance: IRINOTECAN HYDROCHLORIDE
     Indication: PANCREATIC CARCINOMA
     Dosage: 35 MG/M2
     Route: 042
     Dates: start: 20200903, end: 202101
  2. LEVOFOLINATE YAKULT [Suspect]
     Active Substance: LEVOLEUCOVORIN CALCIUM
     Indication: PANCREATIC CARCINOMA
     Dosage: 200 MG/M2
     Route: 041
     Dates: start: 20200903, end: 202101
  3. 5?FU [Concomitant]
     Active Substance: FLUOROURACIL
     Indication: PANCREATIC CARCINOMA
     Dosage: 800MG/M2
     Route: 042
     Dates: start: 20200903, end: 202101

REACTIONS (2)
  - Neutropenia [Recovered/Resolved]
  - Malignant neoplasm progression [Fatal]

NARRATIVE: CASE EVENT DATE: 2021
